FAERS Safety Report 19819713 (Version 1)
Quarter: 2021Q3

REPORT INFORMATION
  Report Type: Spontaneous
  Country: NL (occurrence: NL)
  Receive Date: 20210913
  Receipt Date: 20210913
  Transmission Date: 20211014
  Serious: Yes (Other)
  Sender: FDA-Public Use
  Company Number: NL-AUROBINDO-AUR-APL-2021-038435

PATIENT
  Sex: Male
  Weight: 5.1 kg

DRUGS (2)
  1. VORICONAZOLE. [Suspect]
     Active Substance: VORICONAZOLE
     Indication: FUNGAL INFECTION
     Dosage: 70 MILLIGRAM/KILOGRAM, ONCE A DAY (35 MG/KG, 2X/DAY)
     Route: 048
  2. VORICONAZOLE. [Suspect]
     Active Substance: VORICONAZOLE
     Dosage: 70 MILLIGRAM/KILOGRAM(70 MG/KG)
     Route: 048

REACTIONS (2)
  - Hepatotoxicity [Recovered/Resolved]
  - Nephropathy toxic [Recovered/Resolved]
